FAERS Safety Report 11980585 (Version 1)
Quarter: 2016Q1

REPORT INFORMATION
  Report Type: Spontaneous
  Country: US (occurrence: US)
  Receive Date: 20160129
  Receipt Date: 20160129
  Transmission Date: 20160526
  Serious: Yes (Hospitalization, Other)
  Sender: FDA-Public Use
  Company Number: US-EGALET US INC-US-2016EGA000011

PATIENT

DRUGS (1)
  1. OXYCODONE HYDROCHLORIDE. [Suspect]
     Active Substance: OXYCODONE HYDROCHLORIDE
     Indication: BACK PAIN
     Dosage: UNK DF, UNK
     Route: 048

REACTIONS (13)
  - Spinal cord ischaemia [Unknown]
  - Muscle spasms [Recovering/Resolving]
  - Bladder spasm [Recovering/Resolving]
  - Respiratory acidosis [Unknown]
  - Quadriplegia [Recovering/Resolving]
  - Loss of consciousness [Recovered/Resolved]
  - Hypoxia [Unknown]
  - Akinesia [Unknown]
  - Hypercapnia [Unknown]
  - Nuclear magnetic resonance imaging abnormal [Unknown]
  - Intentional overdose [Unknown]
  - Respiratory depression [Unknown]
  - Spinal cord oedema [Unknown]
